FAERS Safety Report 7301575-5 (Version None)
Quarter: 2011Q1

REPORT INFORMATION
  Report Type: 
  Country: None (occurrence: None)
  Receive Date: 20110218
  Receipt Date: 20110208
  Transmission Date: 20110831
  Serious: Yes (Hospitalization, Other)
  Sender: FDA-Public Use
  Company Number: FR-ELI_LILLY_AND_COMPANY-FR201102003036

PATIENT
  Age: 54 Year
  Sex: Female

DRUGS (7)
  1. TRAMADOL [Concomitant]
     Dates: end: 20110208
  2. LEXOMIL [Concomitant]
     Dates: end: 20110208
  3. CYMBALTA [Suspect]
     Dosage: 60 MG, DAILY (1/D)
  4. CYMBALTA [Suspect]
     Dosage: 120 MG, DAILY (1/D)
     Route: 048
     Dates: end: 20110208
  5. CYMBALTA [Suspect]
     Dosage: 30 MG, DAILY (1/D)
  6. VOLTAREN [Concomitant]
  7. INIPOMP [Concomitant]

REACTIONS (5)
  - HEPATITIS C ANTIBODY POSITIVE [None]
  - GAMMA-GLUTAMYLTRANSFERASE INCREASED [None]
  - JAUNDICE [None]
  - PROTHROMBIN TIME SHORTENED [None]
  - HEPATOCELLULAR INJURY [None]
